FAERS Safety Report 16581869 (Version 1)
Quarter: 2019Q3

REPORT INFORMATION
  Report Type: Report from Study
  Country: None (occurrence: BR)
  Receive Date: 20190716
  Receipt Date: 20190716
  Transmission Date: 20191004
  Serious: Yes (Hospitalization, Disabling, Other)
  Sender: FDA-Public Use
  Company Number: BR-ABBVIE-19K-020-2851573-00

PATIENT
  Age: 55 Year
  Sex: Female
  Weight: 80 kg

DRUGS (1)
  1. HUMIRA [Suspect]
     Active Substance: ADALIMUMAB
     Indication: RHEUMATOID ARTHRITIS
     Route: 058
     Dates: start: 20180402

REACTIONS (13)
  - Vomiting [Unknown]
  - Tuberculosis [Unknown]
  - Nodule [Unknown]
  - Pyrexia [Unknown]
  - Skin lesion inflammation [Not Recovered/Not Resolved]
  - Abdominal pain [Unknown]
  - Gait inability [Unknown]
  - Depressed mood [Unknown]
  - Platelet count increased [Unknown]
  - Asthenia [Not Recovered/Not Resolved]
  - Abdominal distension [Unknown]
  - Abdominal mass [Unknown]
  - Hypophagia [Unknown]

NARRATIVE: CASE EVENT DATE: 20190630
